FAERS Safety Report 10691240 (Version 1)
Quarter: 2014Q4

REPORT INFORMATION
  Report Type: Spontaneous
  Country: US (occurrence: None)
  Receive Date: 20141126
  Receipt Date: 20141126
  Transmission Date: 20150529
  Serious: Yes (Hospitalization, Other)
  Sender: FDA-Public Use
  Company Number: CO-KP-US-2014-002

PATIENT
  Age: 2 Year

DRUGS (1)
  1. CLONIDINE (CLONIDINE) [Suspect]
     Active Substance: CLONIDINE

REACTIONS (1)
  - Accidental overdose [None]
